FAERS Safety Report 10183424 (Version 2)
Quarter: 2014Q4

REPORT INFORMATION
  Report Type: Spontaneous
  Country: US (occurrence: US)
  Receive Date: 20140520
  Receipt Date: 20141118
  Transmission Date: 20150528
  Serious: Yes (Hospitalization)
  Sender: FDA-Public Use
  Company Number: US-ASTRAZENECA-2014SE32842

PATIENT
  Age: 639 Month
  Sex: Female
  Weight: 72.6 kg

DRUGS (7)
  1. SYMBICORT [Suspect]
     Active Substance: BUDESONIDE\FORMOTEROL FUMARATE DIHYDRATE
     Indication: CHRONIC OBSTRUCTIVE PULMONARY DISEASE
     Dosage: 160/4.5, 2 PUFFS TWO TIMES A DAY
     Route: 055
     Dates: start: 2013
  2. SEROQUEL [Suspect]
     Active Substance: QUETIAPINE FUMARATE
     Route: 048
  3. ELAVIL [Suspect]
     Active Substance: AMITRIPTYLINE HYDROCHLORIDE
     Route: 065
  4. OXYGEN. [Concomitant]
     Active Substance: OXYGEN
  5. STEROID MEDICATION [Suspect]
     Active Substance: UNSPECIFIED INGREDIENT
     Route: 065
  6. ALBUTEROL. [Concomitant]
     Active Substance: ALBUTEROL
  7. SPIRIVA [Concomitant]
     Active Substance: TIOTROPIUM BROMIDE MONOHYDRATE

REACTIONS (6)
  - Influenza [Unknown]
  - Lung infection [Unknown]
  - Drug hypersensitivity [Unknown]
  - Device misuse [Unknown]
  - Pneumonia [Unknown]
  - Candida infection [Unknown]

NARRATIVE: CASE EVENT DATE: 201402
